FAERS Safety Report 20475377 (Version 2)
Quarter: 2022Q2

REPORT INFORMATION
  Report Type: Report from Study
  Country: US (occurrence: US)
  Receive Date: 20220215
  Receipt Date: 20220416
  Transmission Date: 20220721
  Serious: Yes (Death, Hospitalization, Other)
  Sender: FDA-Public Use
  Company Number: US-UCBSA-2022006321

PATIENT
  Age: 87 Year
  Sex: Female
  Weight: 83 kg

DRUGS (1)
  1. LACOSAMIDE [Suspect]
     Active Substance: LACOSAMIDE
     Indication: Seizure
     Dosage: 200 MILLIGRAM, 2X/DAY (BID)
     Dates: end: 20211230

REACTIONS (7)
  - Death [Fatal]
  - Seizure [Unknown]
  - Myocardial infarction [Unknown]
  - Loss of consciousness [Unknown]
  - Epilepsy [Unknown]
  - Nasal disorder [Unknown]
  - Sleep deficit [Unknown]

NARRATIVE: CASE EVENT DATE: 20211230
